FAERS Safety Report 21840166 (Version 1)
Quarter: 2023Q1

REPORT INFORMATION
  Report Type: Spontaneous
  Country: US (occurrence: US)
  Receive Date: 20230110
  Receipt Date: 20230110
  Transmission Date: 20230417
  Serious: No
  Sender: FDA-Public Use
  Company Number: US-PADAGIS-2022PAD01239

PATIENT

DRUGS (1)
  1. EVAMIST [Suspect]
     Active Substance: ESTRADIOL
     Indication: Menopause
     Dosage: QD 2 SPRAYS DAILY
     Route: 065
     Dates: start: 20221207

REACTIONS (3)
  - Dysphonia [Unknown]
  - Illness [Unknown]
  - Product quality issue [Unknown]

NARRATIVE: CASE EVENT DATE: 20221207
